FAERS Safety Report 15685412 (Version 1)
Quarter: 2018Q4

REPORT INFORMATION
  Report Type: Report from Study
  Country: IL (occurrence: IL)
  Receive Date: 20181204
  Receipt Date: 20181204
  Transmission Date: 20190205
  Serious: Yes (Hospitalization)
  Sender: FDA-Public Use
  Company Number: PHHY2015IL021575

PATIENT
  Age: 90 Year
  Sex: Male
  Weight: 68 kg

DRUGS (9)
  1. SANDOSTATIN LAR DEPOT [Suspect]
     Active Substance: OCTREOTIDE ACETATE
     Indication: CARCINOID TUMOUR
     Dosage: 30 MG, QMO (FOR EVERY 4 WEEKS)
     Route: 030
     Dates: start: 20100804
  2. SANDOSTATIN LAR DEPOT [Suspect]
     Active Substance: OCTREOTIDE ACETATE
     Dosage: 30 MG, QMO (FOR EVERY 4 WEEKS)
     Route: 030
     Dates: end: 20181031
  3. AFINITOR [Suspect]
     Active Substance: EVEROLIMUS
     Indication: PANCREATIC NEUROENDOCRINE TUMOUR
     Dosage: 10 MG, QD
     Route: 048
     Dates: start: 2009
  4. AFINITOR [Suspect]
     Active Substance: EVEROLIMUS
     Dosage: UNK
  5. SANDOSTATIN LAR DEPOT [Suspect]
     Active Substance: OCTREOTIDE ACETATE
     Indication: NEUROENDOCRINE TUMOUR
     Dosage: 30 MG, QMO (FOR EVERY 4 WEEKS)
     Route: 030
  6. AFINITOR [Suspect]
     Active Substance: EVEROLIMUS
     Dosage: UNK
  7. AFINITOR [Suspect]
     Active Substance: EVEROLIMUS
     Dosage: 5 MG, QD
     Route: 048
     Dates: start: 20180306
  8. SANDOSTATIN LAR DEPOT [Suspect]
     Active Substance: OCTREOTIDE ACETATE
     Dosage: 30 MG, QMO (FOR EVERY 4 WEEKS)
     Route: 065
  9. SUTENT [Suspect]
     Active Substance: SUNITINIB MALATE
     Indication: PRODUCT USED FOR UNKNOWN INDICATION
     Dosage: 50 MG, UNK
     Route: 065

REACTIONS (12)
  - Erythema [Unknown]
  - Rash [Recovering/Resolving]
  - Product dispensing error [Unknown]
  - Hepatitis [Unknown]
  - Wound [Recovering/Resolving]
  - Swelling [Unknown]
  - Anaemia [Not Recovered/Not Resolved]
  - Hyperkeratosis [Unknown]
  - Dry skin [Unknown]
  - Infection [Not Recovered/Not Resolved]
  - Pruritus [Recovering/Resolving]
  - Abdominal pain upper [Recovering/Resolving]

NARRATIVE: CASE EVENT DATE: 20180929
